FAERS Safety Report 5131776-6 (Version None)
Quarter: 2006Q4

REPORT INFORMATION
  Report Type: 
  Country: None (occurrence: None)
  Receive Date: 20061020
  Receipt Date: 20061012
  Transmission Date: 20070319
  Serious: Yes (Hospitalization, Disabling)
  Sender: FDA-Public Use
  Company Number: CG-MERCK-0610USA10155

PATIENT
  Age: 40 Year
  Sex: Male

DRUGS (1)
  1. STROMECTOL [Suspect]
     Route: 048

REACTIONS (3)
  - ANOREXIA [None]
  - LIMB DISCOMFORT [None]
  - URINARY INCONTINENCE [None]
